FAERS Safety Report 14327196 (Version 1)
Quarter: 2017Q4

REPORT INFORMATION
  Report Type: Spontaneous
  Country: US (occurrence: US)
  Receive Date: 20171227
  Receipt Date: 20171227
  Transmission Date: 20180321
  Serious: Yes (Other)
  Sender: FDA-Public Use
  Company Number: None

PATIENT
  Age: 45 Year
  Sex: Female

DRUGS (4)
  1. PROPRANOLOL [Suspect]
     Active Substance: PROPRANOLOL HYDROCHLORIDE
     Indication: MIGRAINE
     Dosage: 20 MG 1 PILL (TWICE A DAY) TWICE DAILY BY MOUTH
     Route: 048
     Dates: start: 20170825, end: 20171118
  2. LISINOPRIL. [Concomitant]
     Active Substance: LISINOPRIL
  3. ACYCLOVIR. [Concomitant]
     Active Substance: ACYCLOVIR
  4. HYDROCHLOROTHIAZIDE. [Concomitant]
     Active Substance: HYDROCHLOROTHIAZIDE

REACTIONS (5)
  - Gait disturbance [None]
  - Renal disorder [None]
  - Joint stiffness [None]
  - Arthralgia [None]
  - Musculoskeletal discomfort [None]

NARRATIVE: CASE EVENT DATE: 20170825
